FAERS Safety Report 5220628-9 (Version None)
Quarter: 2007Q1

REPORT INFORMATION
  Report Type: 
  Country: None (occurrence: None)
  Receive Date: 20070122
  Receipt Date: 20070108
  Transmission Date: 20070707
  Serious: Yes (Other)
  Sender: FDA-Public Use
  Company Number: HQWYE830121DEC06

PATIENT
  Age: 70 Year
  Sex: Male

DRUGS (2)
  1. PANTECTA (PANTOPRAZOLE, ) [Suspect]
     Indication: HEPATIC CIRRHOSIS
     Dosage: DF ORAL
     Route: 048
     Dates: start: 20060607, end: 20060601
  2. ATIVAN [Concomitant]

REACTIONS (2)
  - NEUTROPENIA [None]
  - WHITE BLOOD CELL COUNT INCREASED [None]
